FAERS Safety Report 19180910 (Version 1)
Quarter: 2021Q2

REPORT INFORMATION
  Report Type: Spontaneous
  Country: US (occurrence: US)
  Receive Date: 20210426
  Receipt Date: 20210426
  Transmission Date: 20210717
  Serious: No
  Sender: FDA-Public Use
  Company Number: US-VERO BIOTECH-2109806

PATIENT
  Age: 3 Week
  Sex: Male

DRUGS (2)
  1. GENOSYL [Suspect]
     Active Substance: NITRIC OXIDE
     Route: 055
     Dates: start: 20210322
  2. GENOSYL [Suspect]
     Active Substance: NITRIC OXIDE

REACTIONS (3)
  - No adverse event [None]
  - Wrong technique in device usage process [None]
  - Device delivery system issue [None]

NARRATIVE: CASE EVENT DATE: 20210328
